FAERS Safety Report 7109930-3 (Version None)
Quarter: 2010Q4

REPORT INFORMATION
  Report Type: 
  Country: None (occurrence: None)
  Receive Date: 20101116
  Receipt Date: 20101116
  Transmission Date: 20110411
  Serious: No
  Sender: FDA-Public Use
  Company Number: None

PATIENT
  Sex: Female
  Weight: 68.9467 kg

DRUGS (11)
  1. BYETTA [Suspect]
     Indication: TYPE 2 DIABETES MELLITUS
     Dosage: 5MCG TWICE DAILY SQ
     Route: 058
     Dates: start: 20101109, end: 20101109
  2. METFORMIN [Concomitant]
  3. ATENOLOL [Concomitant]
  4. LEVOTHYROXINE SODIUM [Concomitant]
  5. SINGULAIR [Concomitant]
  6. FLONASE [Concomitant]
  7. FLEXERIL [Concomitant]
  8. DIAZEPAM [Concomitant]
  9. SUMATRIPTAN [Concomitant]
  10. PROVENTIL-HFA [Concomitant]
  11. MAXZIDE [Concomitant]

REACTIONS (4)
  - DYSPHAGIA [None]
  - GLOSSODYNIA [None]
  - ORAL DISCOMFORT [None]
  - PARAESTHESIA ORAL [None]
